FAERS Safety Report 5581787-1 (Version None)
Quarter: 2008Q1

REPORT INFORMATION
  Report Type: 
  Country: None (occurrence: None)
  Receive Date: 20080104
  Receipt Date: 20071224
  Transmission Date: 20080703
  Serious: Yes (Other)
  Sender: FDA-Public Use
  Company Number: US-PURDUE-USA_2007_0030899

PATIENT
  Sex: Male

DRUGS (1)
  1. OXYCONTIN [Suspect]
     Indication: DRUG EXPOSURE DURING PREGNANCY
     Dosage: UNK MG, UNK

REACTIONS (1)
  - CEREBRAL HAEMORRHAGE [None]
